FAERS Safety Report 13698420 (Version 1)
Quarter: 2017Q2

REPORT INFORMATION
  Report Type: Spontaneous
  Country: PE (occurrence: PE)
  Receive Date: 20170628
  Receipt Date: 20170628
  Transmission Date: 20170830
  Serious: Yes (Hospitalization, Disabling, Other)
  Sender: FDA-Public Use
  Company Number: PE-UCBSA-2017024601

PATIENT
  Age: 55 Year
  Sex: Male

DRUGS (3)
  1. KEPPRA [Suspect]
     Active Substance: LEVETIRACETAM
     Dosage: 3 DF, ONCE DAILY (QD)
     Route: 048
     Dates: start: 2017, end: 2017
  2. KEPPRA [Suspect]
     Active Substance: LEVETIRACETAM
     Indication: EPILEPSY
     Dosage: 500 MG, 2X/DAY (BID)
     Route: 048
     Dates: start: 201703, end: 2017
  3. KEPPRA [Suspect]
     Active Substance: LEVETIRACETAM
     Dosage: 4 DF, ONCE DAILY (QD)
     Route: 048
     Dates: start: 2017

REACTIONS (6)
  - Seizure [Unknown]
  - Cerebrovascular accident [Not Recovered/Not Resolved]
  - Aphasia [Not Recovered/Not Resolved]
  - Cerebral thrombosis [Unknown]
  - Hypokinesia [Not Recovered/Not Resolved]
  - Incorrect route of drug administration [Unknown]

NARRATIVE: CASE EVENT DATE: 2017
